FAERS Safety Report 19369174 (Version 1)
Quarter: 2021Q2

REPORT INFORMATION
  Report Type: Report from Study
  Country: CO (occurrence: CO)
  Receive Date: 20210603
  Receipt Date: 20210603
  Transmission Date: 20210717
  Serious: Yes (Hospitalization)
  Sender: FDA-Public Use
  Company Number: NVSC2021CO117613

PATIENT
  Age: 73 Year
  Sex: Female
  Weight: 42 kg

DRUGS (7)
  1. VOLTAREN [Suspect]
     Active Substance: DICLOFENAC SODIUM
     Indication: POST PROCEDURAL COMPLICATION
     Dosage: UNK UNK, QD (EVERY 24 HOURS)
     Route: 048
  2. ATORVASTATIN [Suspect]
     Active Substance: ATORVASTATIN
     Indication: BLOOD CHOLESTEROL INCREASED
     Dosage: UNK UNK, QD (EVERY 24 HOURS)
     Route: 048
  3. REVOLADE [Suspect]
     Active Substance: ELTROMBOPAG OLAMINE
     Indication: IMMUNE THROMBOCYTOPENIA
     Dosage: 75 MG, QD (STARTED TREATMENT LESS THAN ONE YEAR AGO)
     Route: 048
     Dates: end: 20210302
  4. METOPROLOL. [Suspect]
     Active Substance: METOPROLOL
     Indication: POST PROCEDURAL COMPLICATION
     Dosage: UNK UNK, QD (EVERY 24 HOURS)
     Route: 048
  5. AZACITIDINE. [Concomitant]
     Active Substance: AZACITIDINE
     Indication: ACUTE MYELOID LEUKAEMIA
     Dosage: UNK UNK, QD (EVERY 24 HOURS)
     Route: 048
  6. ATORVASTATIN [Suspect]
     Active Substance: ATORVASTATIN
     Indication: BLOOD TRIGLYCERIDES INCREASED
  7. BETALOC ZOK [Concomitant]
     Active Substance: METOPROLOL SUCCINATE
     Indication: POST PROCEDURAL COMPLICATION
     Dosage: 50 MG, QD (EVERY 24 HOURS)
     Route: 048

REACTIONS (2)
  - Vascular occlusion [Recovered/Resolved]
  - Feeling abnormal [Recovered/Resolved]

NARRATIVE: CASE EVENT DATE: 20210302
